FAERS Safety Report 16969251 (Version 1)
Quarter: 2019Q4

REPORT INFORMATION
  Report Type: Other
  Country: US (occurrence: US)
  Receive Date: 20191029
  Receipt Date: 20191029
  Transmission Date: 20200122
  Serious: Yes (Other)
  Sender: FDA-Public Use
  Company Number: US-MLV PHARMA LLC-000001

PATIENT
  Age: 73 Year
  Sex: Male

DRUGS (1)
  1. ROPINIROLE. [Suspect]
     Active Substance: ROPINIROLE
     Indication: PARKINSON^S DISEASE
     Dosage: 0.5 MG TWICE DAILY

REACTIONS (3)
  - Corneal oedema [Recovering/Resolving]
  - Corneal disorder [Recovering/Resolving]
  - Visual acuity reduced [Recovering/Resolving]
